FAERS Safety Report 6937471-2 (Version None)
Quarter: 2010Q3

REPORT INFORMATION
  Report Type: 
  Country: None (occurrence: None)
  Receive Date: 20100823
  Receipt Date: 20100823
  Transmission Date: 20110219
  Serious: Yes (Other)
  Sender: FDA-Public Use
  Company Number: None

PATIENT
  Sex: Male
  Weight: 83.9154 kg

DRUGS (11)
  1. LAMOTRIGINE [Suspect]
     Indication: EPILEPSY
     Dosage: 60MG BID PO
     Route: 048
     Dates: start: 20100414, end: 20100624
  2. BACITRACIN [Concomitant]
  3. BISACODYL [Concomitant]
  4. CALCIUM CARBONATE [Concomitant]
  5. DOCUSATE [Concomitant]
  6. HYDROCORTISONE [Concomitant]
  7. LACOSAMIDE [Concomitant]
  8. LEVETIRACETAM [Concomitant]
  9. LISINOPRIL [Concomitant]
  10. MAGNESIUM HYDROXIDE TAB [Concomitant]
  11. MINERAL OIL/PETROLATUM [Concomitant]

REACTIONS (1)
  - DRUG ERUPTION [None]
